FAERS Safety Report 9314266 (Version 1)
Quarter: 2013Q2

REPORT INFORMATION
  Report Type: Report from Study
  Country: MX (occurrence: MX)
  Receive Date: 20130529
  Receipt Date: 20130529
  Transmission Date: 20140414
  Serious: Yes (Death)
  Sender: FDA-Public Use
  Company Number: PHHY2013MX053728

PATIENT
  Age: 73 Year
  Sex: Male

DRUGS (1)
  1. TEGRETOL 200 LC [Suspect]
     Indication: EPILEPSY
     Dosage: 2 DF (200 MG) DAILY
     Route: 048
     Dates: start: 201008

REACTIONS (1)
  - Infarction [Fatal]
